FAERS Safety Report 10679760 (Version 1)
Quarter: 2014Q4

REPORT INFORMATION
  Report Type: Other
  Country: GB (occurrence: GB)
  Receive Date: 20141229
  Receipt Date: 20141229
  Transmission Date: 20150529
  Serious: Yes (Hospitalization, Other)
  Sender: FDA-Public Use
  Company Number: GB-TAKEDA-2014TEU011173

PATIENT
  Age: 71 Year
  Sex: Male

DRUGS (13)
  1. SITAGLIPTIN [Concomitant]
     Active Substance: SITAGLIPTIN
  2. ATORVASTATIN [Concomitant]
     Active Substance: ATORVASTATIN
  3. COCODAMOL [Concomitant]
     Active Substance: ACETAMINOPHEN\CODEINE PHOSPHATE
  4. PIOGLITAZONE [Suspect]
     Active Substance: PIOGLITAZONE
     Indication: TYPE 2 DIABETES MELLITUS
     Dosage: 45 MG, QD
     Route: 048
  5. ATENOLOL. [Concomitant]
     Active Substance: ATENOLOL
  6. ISOSORBIDE [Concomitant]
     Active Substance: ISOSORBIDE
  7. CETIRIZINE [Concomitant]
     Active Substance: CETIRIZINE HYDROCHLORIDE
  8. NICORANDIL [Concomitant]
     Active Substance: NICORANDIL
  9. GLICLAZIDE [Concomitant]
     Active Substance: GLICLAZIDE
  10. METFORMIN [Concomitant]
     Active Substance: METFORMIN HYDROCHLORIDE
  11. ASPIRIN. [Concomitant]
     Active Substance: ASPIRIN
  12. RAMIPRIL. [Concomitant]
     Active Substance: RAMIPRIL
  13. BISACODYL. [Concomitant]
     Active Substance: BISACODYL

REACTIONS (1)
  - Pulmonary oedema [Recovered/Resolved]
